FAERS Safety Report 24715815 (Version 1)
Quarter: 2024Q4

REPORT INFORMATION
  Report Type: Spontaneous
  Country: ZA (occurrence: ZA)
  Receive Date: 20241210
  Receipt Date: 20241210
  Transmission Date: 20250115
  Serious: Yes (Death)
  Sender: AMGEN
  Company Number: ZA-SERVIER-S24016094

PATIENT
  Age: 89 Year
  Sex: Male

DRUGS (17)
  1. IVABRADINE HYDROCHLORIDE [Suspect]
     Active Substance: IVABRADINE HYDROCHLORIDE
     Indication: Angina pectoris
     Dosage: 5 MG AS DIRECTED
     Route: 048
  2. CARVEDILOL [Concomitant]
     Active Substance: CARVEDILOL
     Indication: Hypertension
     Dosage: 6.25 MG AS DIRECTED
     Route: 048
  3. TWYNSTA [Concomitant]
     Active Substance: AMLODIPINE BESYLATE\TELMISARTAN
     Indication: Hypertension
     Dosage: 1 DF, UNKNOWN
     Route: 048
  4. FUROSEMIDE [Concomitant]
     Active Substance: FUROSEMIDE
     Indication: Hypertension
     Dosage: 40 MG AS DIRECTED
     Route: 048
  5. WARFARIN [Concomitant]
     Active Substance: WARFARIN
     Indication: Anticoagulant therapy
     Dosage: 5 MG AS DIRECTED
     Route: 048
  6. Spiractin [Concomitant]
     Indication: Hypertension
     Dosage: 25 MG AS DIRECTED
     Route: 048
  7. ESOMEPRAZOLE [Concomitant]
     Active Substance: ESOMEPRAZOLE
     Indication: Gastrooesophageal reflux disease
     Dosage: 40 MG AS DIRECTED
     Route: 048
  8. ALLERGEX MEPYRAMINE [Concomitant]
     Indication: Product used for unknown indication
     Dosage: 2 % AS DIRECTED
     Route: 061
  9. TERBINAFINE HYDROCHLORIDE [Concomitant]
     Active Substance: TERBINAFINE HYDROCHLORIDE
     Indication: Product used for unknown indication
     Dosage: 1 % AS DIRECTED
     Route: 061
  10. Mucosolv [Concomitant]
     Indication: Product used for unknown indication
     Dosage: 375 MG AS DIRECTED
     Route: 048
  11. Canex [Concomitant]
     Indication: Product used for unknown indication
     Dosage: 1 % AS DIRECTED
     Route: 061
  12. Bepanthen [Concomitant]
     Indication: Product used for unknown indication
     Dosage: 5 % AS DIRECTED
     Route: 061
  13. Candizole [Concomitant]
     Indication: Product used for unknown indication
     Dosage: 1 %, UNKNOWN
     Route: 061
  14. Adco linctopent [Concomitant]
     Indication: Product used for unknown indication
     Dosage: AS DIRECTED
     Route: 048
  15. FLUTICASONE PROPIONATE\SALMETEROL XINAFOATE [Concomitant]
     Active Substance: FLUTICASONE PROPIONATE\SALMETEROL XINAFOATE
     Indication: Asthma
     Dosage: 50/250 MCG AS DIRECTED
     Route: 055
  16. Somnil [Concomitant]
     Indication: Product used for unknown indication
     Dosage: 25 MG AS DIRECTED
     Route: 048
  17. CIPROFLOXACIN\DEXAMETHASONE [Concomitant]
     Active Substance: CIPROFLOXACIN\DEXAMETHASONE
     Indication: Product used for unknown indication
     Dosage: UNK, AS DIRECTED
     Route: 047

REACTIONS (1)
  - Death [Fatal]
